FAERS Safety Report 9529910 (Version 1)
Quarter: 2013Q3

REPORT INFORMATION
  Report Type: Report from Study
  Country: US (occurrence: US)
  Receive Date: 20130917
  Receipt Date: 20130917
  Transmission Date: 20140515
  Serious: Yes (Hospitalization)
  Sender: FDA-Public Use
  Company Number: US-ACTELION-A-US2013-88553

PATIENT
  Age: 44 Year
  Sex: Female

DRUGS (4)
  1. VENTAVIS [Suspect]
     Indication: PULMONARY ARTERIAL HYPERTENSION
     Dosage: 10 MCG/ML
     Route: 055
  2. SILDENAFIL [Concomitant]
     Indication: PULMONARY ARTERIAL HYPERTENSION
  3. LETAIRIS [Concomitant]
  4. COUMADIN [Concomitant]

REACTIONS (2)
  - Fall [Unknown]
  - Upper respiratory tract infection [Unknown]
